FAERS Safety Report 11451022 (Version 1)
Quarter: 2015Q3

REPORT INFORMATION
  Report Type: Spontaneous
  Country: US (occurrence: US)
  Receive Date: 20150903
  Receipt Date: 20150903
  Transmission Date: 20151125
  Serious: Yes (Other)
  Sender: FDA-Public Use
  Company Number: US-ASTRAZENECA-2015SE82464

PATIENT
  Age: 84 Year
  Sex: Female

DRUGS (3)
  1. PROTONIX [Suspect]
     Active Substance: PANTOPRAZOLE SODIUM
     Route: 065
  2. PRILOSEC [Suspect]
     Active Substance: OMEPRAZOLE MAGNESIUM
     Dosage: DAILY
     Route: 048
     Dates: start: 2007
  3. PROTONIX [Suspect]
     Active Substance: PANTOPRAZOLE SODIUM
     Route: 065

REACTIONS (8)
  - Myocardial infarction [Unknown]
  - Nausea [Unknown]
  - Vomiting [Unknown]
  - Small intestinal obstruction [Unknown]
  - Malaise [Unknown]
  - Blood magnesium decreased [Unknown]
  - Headache [Unknown]
  - Vitamin B12 deficiency [Unknown]
